FAERS Safety Report 21326961 (Version 1)
Quarter: 2022Q3

REPORT INFORMATION
  Report Type: Spontaneous
  Country: CN (occurrence: CN)
  Receive Date: 20220913
  Receipt Date: 20220913
  Transmission Date: 20221027
  Serious: Yes (Hospitalization, Other)
  Sender: FDA-Public Use
  Company Number: None

PATIENT
  Age: 44 Year
  Sex: Female
  Weight: 80 kg

DRUGS (3)
  1. CYCLOPHOSPHAMIDE [Suspect]
     Active Substance: CYCLOPHOSPHAMIDE
     Indication: Breast cancer female
     Dosage: 1000 MG, Q21D DILUTED WITH SODIUM CHLORIDE AND WATER FOR INJECTION
     Route: 041
     Dates: start: 20220607, end: 20220805
  2. SODIUM CHLORIDE [Suspect]
     Active Substance: SODIUM CHLORIDE
     Indication: Medication dilution
     Dosage: 200 ML, Q21D DILUTED WITH WATER FOR INJECTION AND CYCLOPHOSPHAMIDE
     Route: 041
     Dates: start: 20220607, end: 20220805
  3. WATER FOR INJECTION [Suspect]
     Active Substance: WATER
     Indication: Medication dilution
     Dosage: 5 ML, Q21D DILUTED WITH SODIUM CHLORIDE AND CYCLOPHOSPHAMIDE
     Route: 041
     Dates: start: 20220607, end: 20220805

REACTIONS (2)
  - Hepatic function abnormal [Recovered/Resolved]
  - Liver injury [Recovered/Resolved]

NARRATIVE: CASE EVENT DATE: 20220825
